FAERS Safety Report 15765445 (Version 1)
Quarter: 2018Q4

REPORT INFORMATION
  Report Type: Spontaneous
  Country: US (occurrence: US)
  Receive Date: 20181227
  Receipt Date: 20181227
  Transmission Date: 20190205
  Serious: Yes (Hospitalization)
  Sender: FDA-Public Use
  Company Number: None

PATIENT
  Sex: Male
  Weight: 75 kg

DRUGS (4)
  1. ETOMIDATE. [Concomitant]
     Active Substance: ETOMIDATE
  2. KETAMINE [Concomitant]
     Active Substance: KETAMINE
  3. FENTANYL. [Concomitant]
     Active Substance: FENTANYL
  4. SEVOFLURANE. [Suspect]
     Active Substance: SEVOFLURANE
     Indication: ANAESTHESIA PROCEDURE
     Dosage: ?          OTHER ROUTE:INHALATIONAL?

REACTIONS (1)
  - Transaminases increased [None]
